FAERS Safety Report 6579412-6 (Version None)
Quarter: 2010Q1

REPORT INFORMATION
  Report Type: 
  Country: None (occurrence: None)
  Receive Date: 20100212
  Receipt Date: 20100209
  Transmission Date: 20100710
  Serious: Yes (Death, Hospitalization)
  Sender: FDA-Public Use
  Company Number: US-BRISTOL-MYERS SQUIBB COMPANY-14824692

PATIENT
  Age: 67 Year
  Sex: Male
  Weight: 86 kg

DRUGS (3)
  1. CARBOPLATIN [Suspect]
     Indication: NON-SMALL CELL LUNG CANCER
     Dosage: CARBOPLATIN AUC=2 ON DAYS 1,8,15,22,29,36,43 CARBOPLATIN AUC=6 ON DAYS 71,92
     Dates: start: 20090908, end: 20091013
  2. TAXOL [Suspect]
     Indication: NON-SMALL CELL LUNG CANCER
     Dosage: PACLITAXEL 45 MG/M2 ON DAYS 1,8,15,22,29,36,43 PACLITAXEL 200 MG/M2 ON DAYS 71,92
     Dates: start: 20090908, end: 20091013
  3. RADIATION THERAPY [Suspect]
     Indication: NON-SMALL CELL LUNG CANCER
     Dosage: 1 DF= 56 GY EXTERNAL BEAM 3D,  NO OF FRACTIONS-37 NO OF ELASPSED DAY-56 02NOV09: 74GY.
     Dates: start: 20090908, end: 20091102

REACTIONS (3)
  - NEUTROPENIA [None]
  - PNEUMONITIS [None]
  - PULMONARY EMBOLISM [None]
